FAERS Safety Report 11093799 (Version 2)
Quarter: 2015Q2

REPORT INFORMATION
  Report Type: Report from Study
  Country: US (occurrence: US)
  Receive Date: 20150506
  Receipt Date: 20150520
  Transmission Date: 20150821
  Serious: Yes (Death, Hospitalization)
  Sender: FDA-Public Use
  Company Number: US-ACTELION-A-US2015-115861

PATIENT
  Age: 72 Year
  Sex: Male

DRUGS (15)
  1. METOLAZONE. [Concomitant]
     Active Substance: METOLAZONE
  2. TRACLEER [Suspect]
     Active Substance: BOSENTAN\BOSENTAN MONOHYDRATE
     Indication: PULMONARY HYPERTENSION
     Dosage: 125 MG, BID
     Route: 048
     Dates: start: 20080915, end: 20150413
  3. DILTIAZEM [Concomitant]
     Active Substance: DILTIAZEM
  4. KETOCONAZOLE. [Concomitant]
     Active Substance: KETOCONAZOLE
  5. PRADAXA [Concomitant]
     Active Substance: DABIGATRAN ETEXILATE MESYLATE
  6. PREDNISONE. [Concomitant]
     Active Substance: PREDNISONE
  7. LASIX [Concomitant]
     Active Substance: FUROSEMIDE
  8. LEVAQUIN [Concomitant]
     Active Substance: LEVOFLOXACIN
  9. DIGOXIN. [Concomitant]
     Active Substance: DIGOXIN
  10. ASA [Concomitant]
     Active Substance: ASPIRIN
  11. OMEPRAZOLE. [Concomitant]
     Active Substance: OMEPRAZOLE
  12. SITAGLIPTIN [Concomitant]
     Active Substance: SITAGLIPTIN
  13. REVATIO [Concomitant]
     Active Substance: SILDENAFIL CITRATE
  14. PERCOCET [Concomitant]
     Active Substance: ACETAMINOPHEN\OXYCODONE HYDROCHLORIDE
  15. ATORVASTATIN [Concomitant]
     Active Substance: ATORVASTATIN

REACTIONS (4)
  - Acute respiratory failure [Fatal]
  - Pneumonia pseudomonal [Not Recovered/Not Resolved]
  - Respiratory distress [Fatal]
  - Hypoxia [Fatal]

NARRATIVE: CASE EVENT DATE: 20150321
